FAERS Safety Report 6860466-4 (Version None)
Quarter: 2010Q3

REPORT INFORMATION
  Report Type: 
  Country: None (occurrence: None)
  Receive Date: 20100720
  Receipt Date: 20080330
  Transmission Date: 20110219
  Serious: Yes (Hospitalization)
  Sender: FDA-Public Use
  Company Number: A0640845B

PATIENT
  Age: 57 Year
  Sex: Male
  Weight: 82.2 kg

DRUGS (2)
  1. PAZOPANIB [Suspect]
     Indication: MALIGNANT GLIOMA
     Dosage: 400MG PER DAY
     Route: 048
     Dates: start: 20070130, end: 20070216
  2. LAPATINIB [Suspect]
     Indication: MALIGNANT GLIOMA
     Dosage: 1000MG PER DAY
     Route: 048
     Dates: start: 20070130, end: 20070216

REACTIONS (3)
  - CHEST X-RAY ABNORMAL [None]
  - PNEUMONITIS [None]
  - PYREXIA [None]
